FAERS Safety Report 5305675-0 (Version None)
Quarter: 2007Q2

REPORT INFORMATION
  Report Type: 
  Country: None (occurrence: None)
  Receive Date: 20070424
  Receipt Date: 20070315
  Transmission Date: 20071010
  Serious: No
  Sender: FDA-Public Use
  Company Number: US-JNJFOC-20070403143

PATIENT
  Sex: Female

DRUGS (7)
  1. INVEGA [Suspect]
     Indication: SCHIZOPHRENIA
     Route: 048
  2. ABILIFY [Concomitant]
     Route: 048
  3. ANACID [Concomitant]
     Indication: GASTROOESOPHAGEAL REFLUX DISEASE
     Route: 048
  4. FOSAMAX [Concomitant]
     Indication: OSTEOPOROSIS
     Route: 048
  5. TYLENOL [Concomitant]
     Indication: PAIN
     Route: 048
  6. TYLENOL [Concomitant]
     Indication: RESTLESSNESS
     Route: 048
  7. ADAVAN [Concomitant]
     Indication: RESTLESSNESS
     Route: 048

REACTIONS (2)
  - EXTRAPYRAMIDAL DISORDER [None]
  - SEDATION [None]
